FAERS Safety Report 4628929-X (Version None)
Quarter: 2005Q1

REPORT INFORMATION
  Report Type: 
  Country: None (occurrence: None)
  Receive Date: 20050107
  Receipt Date: 20041104
  Transmission Date: 20050727
  Serious: No
  Sender: FDA-Public Use
  Company Number: 232879K04USA

PATIENT
  Age: 33 Year
  Sex: Female

DRUGS (2)
  1. REBIF [Suspect]
     Indication: MULTIPLE SCLEROSIS
     Dosage: SUBCUTANEOUS
     Route: 058
     Dates: start: 20031001, end: 20030101
  2. REBIF [Suspect]
     Indication: MULTIPLE SCLEROSIS
     Dosage: SUBCUTANEOUS
     Route: 058
     Dates: start: 20040101, end: 20040301

REACTIONS (5)
  - DRUG EXPOSURE DURING PREGNANCY [None]
  - MENSTRUAL DISORDER [None]
  - MENSTRUATION IRREGULAR [None]
  - PREGNANCY [None]
  - UNINTENDED PREGNANCY [None]
